FAERS Safety Report 18762191 (Version 1)
Quarter: 2021Q1

REPORT INFORMATION
  Report Type: Spontaneous
  Country: CZ (occurrence: CZ)
  Receive Date: 20210120
  Receipt Date: 20210120
  Transmission Date: 20210419
  Serious: Yes (Other)
  Sender: FDA-Public Use
  Company Number: NVSC2021CZ010950

PATIENT
  Age: 32 Year
  Sex: Female

DRUGS (1)
  1. MOMETASONE FUROATE. [Suspect]
     Active Substance: MOMETASONE FUROATE
     Indication: NASAL DISCOMFORT
     Dosage: UNK
     Route: 061

REACTIONS (9)
  - Pain in extremity [Recovered/Resolved]
  - Leukocytosis [Recovered/Resolved]
  - Neutrophilia [Recovered/Resolved]
  - Premature labour [Unknown]
  - C-reactive protein increased [Recovered/Resolved]
  - Normochromic normocytic anaemia [Recovered/Resolved]
  - Lacrimation increased [Recovered/Resolved]
  - Maternal exposure during pregnancy [Unknown]
  - Pyrexia [Recovered/Resolved]
